FAERS Safety Report 5725226-6 (Version None)
Quarter: 2008Q2

REPORT INFORMATION
  Report Type: 
  Country: None (occurrence: None)
  Receive Date: 20080501
  Receipt Date: 20080428
  Transmission Date: 20081010
  Serious: Yes (Other)
  Sender: FDA-Public Use
  Company Number: B0518830A

PATIENT
  Age: 77 Year
  Sex: Female

DRUGS (9)
  1. CLAMOXYL DUO FORTE [Suspect]
     Indication: URINARY TRACT INFECTION
     Route: 048
     Dates: start: 20080418, end: 20080418
  2. UNKNOWN MEDICATION [Concomitant]
  3. PANAMAX [Concomitant]
  4. SINEQUAN [Concomitant]
  5. OSTEOEZE [Concomitant]
  6. MAGNESIUM [Concomitant]
  7. RABEPRAZOLE SODIUM [Concomitant]
  8. AMLODIPINE [Concomitant]
  9. COLECALCIFEROL [Concomitant]

REACTIONS (3)
  - ABDOMINAL PAIN [None]
  - DIARRHOEA [None]
  - VOMITING [None]
